FAERS Safety Report 5782958-1 (Version None)
Quarter: 2008Q2

REPORT INFORMATION
  Report Type: 
  Country: None (occurrence: None)
  Receive Date: 20080624
  Receipt Date: 20080617
  Transmission Date: 20081010
  Serious: Yes (Hospitalization, Other)
  Sender: FDA-Public Use
  Company Number: PHFR2007GB03322

PATIENT
  Sex: Female
  Weight: 73 kg

DRUGS (9)
  1. EXJADE [Suspect]
     Indication: ANAEMIA
     Dosage: 1500MG
     Route: 048
     Dates: start: 20071023, end: 20071030
  2. ASPIRIN [Concomitant]
     Indication: ANGINA PECTORIS
     Dosage: 75 MG/DAY
     Route: 048
  3. CANDESARTAN [Concomitant]
     Indication: BLOOD PRESSURE INCREASED
     Dosage: 4 MG/DAY
     Route: 048
  4. BISOPROLOL FUMARATE [Concomitant]
     Indication: BLOOD PRESSURE INCREASED
     Dosage: 5 MG/DAY
     Route: 048
  5. ATORVASTATIN [Concomitant]
     Indication: ANGINA PECTORIS
     Dosage: 10 MG/DAY
     Route: 048
  6. OMEPRAZOLE [Concomitant]
     Indication: DYSPEPSIA
     Dosage: 20 MG/DAY
     Route: 048
  7. ACETAMINOPHEN [Concomitant]
     Indication: PAIN
     Dosage: 1 G, PRN
     Route: 048
  8. FYBOGEL [Concomitant]
     Dosage: 2 SACHETS
     Route: 048
  9. COD-LIVER OIL [Concomitant]
     Dosage: 1/DAY
     Route: 048

REACTIONS (7)
  - ERYTHEMA MULTIFORME [None]
  - HYPERSENSITIVITY [None]
  - MUCOUS MEMBRANE DISORDER [None]
  - PRURITUS [None]
  - PYREXIA [None]
  - RASH MACULO-PAPULAR [None]
  - TONGUE DISORDER [None]
